FAERS Safety Report 9794550 (Version 1)
Quarter: 2014Q1

REPORT INFORMATION
  Report Type: Report from Study
  Country: US (occurrence: US)
  Receive Date: 20140102
  Receipt Date: 20140102
  Transmission Date: 20141002
  Serious: Yes (Hospitalization, Other)
  Sender: FDA-Public Use
  Company Number: US-ABBVIE-13P-163-1184522-00

PATIENT
  Sex: Female
  Weight: 87.17 kg

DRUGS (8)
  1. HUMIRA [Suspect]
     Indication: RHEUMATOID ARTHRITIS
     Dates: start: 2007
  2. PLAQUENIL [Concomitant]
     Indication: RHEUMATOID ARTHRITIS
  3. OXYCONTIN [Concomitant]
     Indication: PAIN
  4. OXYCODONE [Concomitant]
     Indication: PAIN
  5. UNKNOWN THYROID MEDICATION [Concomitant]
     Indication: HYPERTHYROIDISM
  6. WELLBUTRIN [Concomitant]
     Indication: DEPRESSION
  7. CLONAZEPAM [Concomitant]
     Indication: ANXIETY
  8. NEURONTIN [Concomitant]
     Indication: NEURALGIA

REACTIONS (10)
  - Rheumatoid arthritis [Recovered/Resolved]
  - Nerve root compression [Recovered/Resolved]
  - Hypoaesthesia [Recovered/Resolved]
  - Headache [Not Recovered/Not Resolved]
  - Pituitary tumour [Not Recovered/Not Resolved]
  - Adrenal neoplasm [Not Recovered/Not Resolved]
  - Fibroadenoma of breast [Not Recovered/Not Resolved]
  - Uterine leiomyoma [Not Recovered/Not Resolved]
  - Uterine leiomyoma [Not Recovered/Not Resolved]
  - Uterine pain [Not Recovered/Not Resolved]
